FAERS Safety Report 16820135 (Version 2)
Quarter: 2020Q2

REPORT INFORMATION
  Report Type: Report from Study
  Country: US (occurrence: US)
  Receive Date: 20190918
  Receipt Date: 20200402
  Transmission Date: 20200713
  Serious: Yes (Other)
  Sender: FDA-Public Use
  Company Number: US-ADVANZ PHARMA-GSH201804-001105

PATIENT

DRUGS (4)
  1. HYDROXYCHLOROQUINE [Suspect]
     Active Substance: HYDROXYCHLOROQUINE
     Indication: RHEUMATOID ARTHRITIS
  2. CEREZYME [Suspect]
     Active Substance: IMIGLUCERASE
     Indication: GAUCHER^S DISEASE
     Dosage: DOSE/UNIT: 3200.00 FREQUENCY: Q2
     Route: 041
     Dates: start: 20120409
  3. CEREZYME [Suspect]
     Active Substance: IMIGLUCERASE
     Dosage: 3200 MG, QOW
     Route: 042
     Dates: start: 20120720
  4. HYDROXYCHLOROQUINE [Suspect]
     Active Substance: HYDROXYCHLOROQUINE
     Indication: PAIN
     Dosage: UNK
     Route: 065

REACTIONS (14)
  - Vessel puncture site swelling [Unknown]
  - Splenomegaly [Unknown]
  - Rash [Unknown]
  - Vein disorder [Unknown]
  - Hepatomegaly [Unknown]
  - Dizziness [Unknown]
  - Malaise [Unknown]
  - Nausea [Unknown]
  - Arthralgia [Not Recovered/Not Resolved]
  - Vessel puncture site bruise [Unknown]
  - Fatigue [Unknown]
  - Puncture site pain [Unknown]
  - Systemic lupus erythematosus [Unknown]
  - Pain in extremity [Not Recovered/Not Resolved]
